FAERS Safety Report 9880304 (Version 2)
Quarter: 2014Q1

REPORT INFORMATION
  Report Type: Spontaneous
  Country: US (occurrence: US)
  Receive Date: 20140207
  Receipt Date: 20140310
  Transmission Date: 20141002
  Serious: No
  Sender: FDA-Public Use
  Company Number: US-009507513-1402USA000315

PATIENT
  Sex: Female
  Weight: 61.68 kg

DRUGS (1)
  1. IMPLANON [Suspect]
     Indication: CONTRACEPTION
     Dosage: UNK
     Route: 059

REACTIONS (2)
  - Medical device complication [Not Recovered/Not Resolved]
  - Incorrect drug administration duration [Unknown]
